FAERS Safety Report 8100439-7 (Version None)
Quarter: 2012Q1

REPORT INFORMATION
  Report Type: 
  Country: None (occurrence: None)
  Receive Date: 20120129
  Receipt Date: 20111214
  Transmission Date: 20120608
  Serious: No
  Sender: FDA-Public Use
  Company Number: US-ABBOTT-11P-163-0870386-00

PATIENT
  Age: 50 Year
  Sex: Female

DRUGS (13)
  1. METHOTREXATE [Concomitant]
     Indication: ARTHRITIS
     Dosage: WEEKLY
  2. PREDNISONE TAB [Concomitant]
     Indication: ARTHRITIS
     Dosage: DAILY
  3. FISH OIL [Concomitant]
     Indication: ROUTINE HEALTH MAINTENANCE
     Dosage: DAILY
  4. MULTI-VITAMIN [Concomitant]
     Indication: ROUTINE HEALTH MAINTENANCE
     Dosage: DAILY
  5. VITAMIN D [Concomitant]
     Indication: ROUTINE HEALTH MAINTENANCE
     Dosage: DAILY
  6. FLAXSEED OIL [Concomitant]
     Indication: ROUTINE HEALTH MAINTENANCE
     Dosage: DAILY
  7. FIBER [Concomitant]
     Indication: IRRITABLE BOWEL SYNDROME
     Dosage: DAILY
  8. VITAMIN B COMPLEX CAP [Concomitant]
     Indication: ROUTINE HEALTH MAINTENANCE
     Dosage: DAILY
  9. HUMIRA [Suspect]
     Indication: RHEUMATOID ARTHRITIS
     Dates: start: 20111018
  10. FOLIC ACID [Concomitant]
     Indication: ROUTINE HEALTH MAINTENANCE
     Route: 048
  11. HYDROXYCHLOROQUINE SULFATE [Concomitant]
     Indication: ARTHRITIS
  12. VIT C [Concomitant]
     Indication: ROUTINE HEALTH MAINTENANCE
     Dosage: DAILY
  13. STOOL SOFTENER [Concomitant]
     Indication: IRRITABLE BOWEL SYNDROME

REACTIONS (10)
  - PAIN [None]
  - SINUSITIS [None]
  - ERYTHEMA [None]
  - NASOPHARYNGITIS [None]
  - INJECTION SITE HAEMORRHAGE [None]
  - MUSCULOSKELETAL STIFFNESS [None]
  - SURGERY [None]
  - DEVICE MALFUNCTION [None]
  - ARTHRITIS [None]
  - SWELLING [None]
